FAERS Safety Report 6082459-X (Version None)
Quarter: 2009Q1

REPORT INFORMATION
  Report Type: 
  Country: None (occurrence: None)
  Receive Date: 20090130
  Receipt Date: 20080604
  Transmission Date: 20090719
  Serious: Yes (Hospitalization)
  Sender: FDA-Public Use
  Company Number: 8033269

PATIENT
  Age: 15 Year
  Sex: Male
  Weight: 18 kg

DRUGS (3)
  1. KEPPRA [Suspect]
     Indication: CONVULSION
     Dosage: 750 MG 2/D PO
     Route: 048
  2. PHENOBARBITAL TAB [Concomitant]
  3. ATIVAN [Concomitant]

REACTIONS (1)
  - PANCREATITIS [None]
